FAERS Safety Report 8544540 (Version 4)
Quarter: 2013Q2

REPORT INFORMATION
  Report Type: Report from Study
  Country: US (occurrence: US)
  Receive Date: 20120503
  Receipt Date: 20130402
  Transmission Date: 20140414
  Serious: Yes (Death, Hospitalization, Other)
  Sender: FDA-Public Use
  Company Number: US-ACTELION-A-US2012-64614

PATIENT
  Age: 34 Year
  Sex: Male

DRUGS (7)
  1. VELETRI [Suspect]
     Indication: PULMONARY ARTERIAL HYPERTENSION
     Dosage: 22 NG/KG, PER MIN
     Route: 042
     Dates: start: 20120123, end: 20120421
  2. ADCIRCA [Concomitant]
     Dosage: UNK
     Dates: start: 20091120, end: 20120304
  3. LETAIRIS [Concomitant]
     Dosage: UNK
     Dates: start: 20100402
  4. FUROSEMIDE [Concomitant]
     Dosage: UNK
     Dates: start: 20100805
  5. METOLAZONE [Concomitant]
     Dosage: UNK
     Dates: start: 20111201
  6. SPIRONOLACTONE [Concomitant]
     Dosage: UNK
     Dates: start: 20111109
  7. GABAPENTIN [Concomitant]
     Dosage: UNK
     Dates: start: 20110427

REACTIONS (10)
  - Pulmonary hypertension [Fatal]
  - Cardiac failure [Fatal]
  - Ascites [Fatal]
  - Renal failure acute [Unknown]
  - Thrombocytopenia [Unknown]
  - Peritonitis bacterial [Unknown]
  - Haemoglobin decreased [Unknown]
  - Abdominal distension [Unknown]
  - Arterial therapeutic procedure [Unknown]
  - Fluid retention [Fatal]
